FAERS Safety Report 11023144 (Version 2)
Quarter: 2015Q2

REPORT INFORMATION
  Report Type: Spontaneous
  Country: IT (occurrence: IT)
  Receive Date: 20150413
  Receipt Date: 20150423
  Transmission Date: 20150821
  Serious: Yes (Other)
  Sender: FDA-Public Use
  Company Number: IT-PFIZER INC-2015120559

PATIENT
  Age: 75 Year
  Sex: Male

DRUGS (2)
  1. PRELECTAL [Concomitant]
     Indication: BLOOD PRESSURE
     Dosage: 5 MG, UNK
  2. VIAGRA [Suspect]
     Active Substance: SILDENAFIL CITRATE
     Indication: ERECTILE DYSFUNCTION
     Dosage: 25 MG (HALF OF 50 MG), AS NEEDED
     Route: 048
     Dates: start: 201501

REACTIONS (6)
  - Fungal infection [Recovered/Resolved]
  - Pruritus genital [Recovered/Resolved]
  - Genital erythema [Recovered/Resolved]
  - Prostatitis [Recovered/Resolved]
  - Cystitis [Recovered/Resolved]
  - Orchitis [Recovered/Resolved]

NARRATIVE: CASE EVENT DATE: 201503
